FAERS Safety Report 16913596 (Version 2)
Quarter: 2019Q4

REPORT INFORMATION
  Report Type: Report from Study
  Country: AU (occurrence: AU)
  Receive Date: 20191014
  Receipt Date: 20191018
  Transmission Date: 20200122
  Serious: Yes (Hospitalization, Other)
  Sender: FDA-Public Use
  Company Number: AU-BRISTOL-MYERS SQUIBB COMPANY-BMS-2019-097365

PATIENT
  Age: 70 Year
  Sex: Female
  Weight: 88.7 kg

DRUGS (10)
  1. IPILIMUMAB [Suspect]
     Active Substance: IPILIMUMAB
     Indication: FEMALE REPRODUCTIVE NEOPLASM
     Route: 065
  2. RESONIUM [Concomitant]
     Active Substance: SODIUM POLYSTYRENE SULFONATE
     Indication: HYPERKALAEMIA
     Dosage: UNK
     Route: 065
     Dates: start: 20190827
  3. NIVOLUMAB [Suspect]
     Active Substance: NIVOLUMAB
     Indication: FEMALE REPRODUCTIVE NEOPLASM
     Route: 065
  4. NIVOLUMAB [Suspect]
     Active Substance: NIVOLUMAB
     Indication: GASTROINTESTINAL NEOPLASM
     Dosage: 257 MILLIGRAM
     Route: 042
     Dates: start: 20190627
  5. GLICLAZIDE [Concomitant]
     Active Substance: GLICLAZIDE
     Indication: DIABETES MELLITUS
     Dosage: UNK
     Route: 065
     Dates: start: 20190729
  6. NIVOLUMAB [Suspect]
     Active Substance: NIVOLUMAB
     Indication: NEUROENDOCRINE TUMOUR
     Route: 065
  7. IPILIMUMAB [Suspect]
     Active Substance: IPILIMUMAB
     Indication: GASTROINTESTINAL NEOPLASM
     Dosage: 86 MILLIGRAM
     Route: 042
     Dates: start: 20190627
  8. APIXABAN [Concomitant]
     Active Substance: APIXABAN
     Indication: PULMONARY EMBOLISM
     Dosage: UNK
     Route: 065
     Dates: start: 20170915
  9. TAMSULOSIN [Concomitant]
     Active Substance: TAMSULOSIN
     Indication: BLADDER SPASM
     Dosage: UNK
     Route: 065
     Dates: start: 20190921, end: 20190921
  10. IPILIMUMAB [Suspect]
     Active Substance: IPILIMUMAB
     Indication: NEUROENDOCRINE TUMOUR
     Route: 065

REACTIONS (1)
  - Sepsis [Recovered/Resolved]

NARRATIVE: CASE EVENT DATE: 20191006
